FAERS Safety Report 6784285-2 (Version None)
Quarter: 2010Q2

REPORT INFORMATION
  Report Type: 
  Country: None (occurrence: None)
  Receive Date: 20100622
  Receipt Date: 20100222
  Transmission Date: 20101027
  Serious: No
  Sender: FDA-Public Use
  Company Number: IE-PFIZER INC-2009311922

PATIENT
  Sex: Male

DRUGS (4)
  1. LYRICA [Suspect]
     Dosage: UNK
  2. XANAX [Suspect]
     Dosage: UNK
  3. PHENYTOIN SODIUM CAP [Concomitant]
  4. EPILIM [Concomitant]

REACTIONS (1)
  - NO ADVERSE EVENT [None]
